FAERS Safety Report 4600694-1 (Version None)
Quarter: 2005Q1

REPORT INFORMATION
  Report Type: 
  Country: None (occurrence: None)
  Receive Date: 20050301
  Receipt Date: 20040723
  Transmission Date: 20050727
  Serious: Yes (Other)
  Sender: FDA-Public Use
  Company Number: 200510189BBE

PATIENT
  Sex: Male

DRUGS (2)
  1. KONYNE [Suspect]
     Indication: FACTOR IX DEFICIENCY
     Dates: start: 19860101, end: 19880101
  2. FIX CONCENTRATE (FACTOR IX) [Suspect]
     Indication: FACTOR IX DEFICIENCY
     Dates: start: 19820719

REACTIONS (1)
  - HEPATITIS C VIRUS [None]
